FAERS Safety Report 8549725-7 (Version None)
Quarter: 2012Q3

REPORT INFORMATION
  Report Type: 
  Country: None (occurrence: None)
  Receive Date: 20120730
  Receipt Date: 20120705
  Transmission Date: 20120928
  Serious: No
  Sender: FDA-Public Use
  Company Number: US-009507513-2012SP024482

PATIENT

DRUGS (3)
  1. DEPAKOTE [Concomitant]
     Indication: EPILEPSY
  2. NEXPLANON [Suspect]
     Indication: CONTRACEPTION
     Route: 059
     Dates: start: 20120315
  3. DEPAKOTE [Concomitant]
     Indication: DEPRESSION

REACTIONS (4)
  - PAIN IN EXTREMITY [None]
  - MUSCLE SPASMS [None]
  - LOSS OF LIBIDO [None]
  - METRORRHAGIA [None]
